FAERS Safety Report 6574522-1 (Version None)
Quarter: 2010Q1

REPORT INFORMATION
  Report Type: 
  Country: None (occurrence: None)
  Receive Date: 20100209
  Receipt Date: 20091109
  Transmission Date: 20100710
  Serious: No
  Sender: FDA-Public Use
  Company Number: A0816065A

PATIENT
  Age: 34 Year
  Sex: Female

DRUGS (2)
  1. PAROXETINE HCL [Suspect]
     Indication: DEPRESSION
     Dosage: 20MG PER DAY
     Route: 048
     Dates: start: 20090605, end: 20090610
  2. NO CONCURRENT MEDICATION [Concomitant]

REACTIONS (9)
  - AGITATION [None]
  - FEELING ABNORMAL [None]
  - FEELING OF BODY TEMPERATURE CHANGE [None]
  - HEART RATE INCREASED [None]
  - HYPOTENSION [None]
  - LETHARGY [None]
  - MUSCLE TWITCHING [None]
  - SENSATION OF HEAVINESS [None]
  - TUNNEL VISION [None]
